FAERS Safety Report 5818525-0 (Version None)
Quarter: 2008Q3

REPORT INFORMATION
  Report Type: 
  Country: None (occurrence: None)
  Receive Date: 20080717
  Receipt Date: 20080708
  Transmission Date: 20090109
  Serious: Yes (Hospitalization)
  Sender: FDA-Public Use
  Company Number: US024047

PATIENT
  Age: 58 Year
  Sex: Male

DRUGS (2)
  1. TRISENOX [Suspect]
     Indication: MULTIPLE MYELOMA
     Dosage: INTRAVENOUS DRIP
     Route: 041
     Dates: start: 20080407, end: 20080411
  2. ASCORBIC ACID [Concomitant]

REACTIONS (2)
  - LIVER FUNCTION TEST ABNORMAL [None]
  - PERICARDITIS [None]
